FAERS Safety Report 26113706 (Version 1)
Quarter: 2025Q4

REPORT INFORMATION
  Report Type: Spontaneous
  Country: US (occurrence: US)
  Receive Date: 20251202
  Receipt Date: 20251202
  Transmission Date: 20260118
  Serious: Yes (Death, Life-Threatening, Hospitalization, Other)
  Sender: AMGEN
  Company Number: US-AMGEN-USASP2025234948

PATIENT
  Age: 17 Year
  Sex: Male

DRUGS (3)
  1. RITUXIMAB [Suspect]
     Active Substance: RITUXIMAB
     Indication: Kidney transplant rejection
     Dosage: 375 MILLIGRAM/SQ. METER, INFUSION
     Route: 065
  2. METHYLPREDNISOLONE [Concomitant]
     Active Substance: METHYLPREDNISOLONE
     Indication: Kidney transplant rejection
     Dosage: 10 MILLIGRAM/KILOGRAM
     Route: 040
  3. Immunoglobulin [Concomitant]
     Indication: Kidney transplant rejection
     Dosage: 1 GRAM PER KILOGRAM
     Route: 040

REACTIONS (10)
  - Cardiac arrest [Fatal]
  - Acute respiratory failure [Unknown]
  - Acute respiratory distress syndrome [Unknown]
  - Hyperkalaemia [Unknown]
  - Atrial fibrillation [Unknown]
  - Acute pulmonary oedema [Unknown]
  - Cytokine release syndrome [Unknown]
  - Tachycardia [Unknown]
  - Infusion related reaction [Unknown]
  - Off label use [Unknown]
